FAERS Safety Report 6084564-0 (Version None)
Quarter: 2009Q1

REPORT INFORMATION
  Report Type: 
  Country: None (occurrence: None)
  Receive Date: 20090219
  Receipt Date: 20090212
  Transmission Date: 20090719
  Serious: Yes (Hospitalization)
  Sender: FDA-Public Use
  Company Number: GB-EISAI MEDICAL RESEARCH-E2020-04126-SPO-GB

PATIENT
  Age: 80 Year
  Sex: Male
  Weight: 66.9 kg

DRUGS (8)
  1. ARICEPT [Suspect]
     Indication: DEMENTIA
     Route: 048
     Dates: start: 20090130, end: 20090131
  2. ASPIRIN [Concomitant]
  3. BISACODYL [Concomitant]
  4. ACETAMINOPHEN W/ CODEINE [Concomitant]
  5. DOXAZOSIN MESYLATE [Concomitant]
  6. ISPAGHULA HUSK [Concomitant]
  7. LINISOPRIL [Concomitant]
  8. PARACETAMOL [Concomitant]

REACTIONS (2)
  - ARTERIOSPASM CORONARY [None]
  - CIRCULATORY COLLAPSE [None]
